FAERS Safety Report 5761575-3 (Version None)
Quarter: 2008Q2

REPORT INFORMATION
  Report Type: 
  Country: None (occurrence: None)
  Receive Date: 20080606
  Receipt Date: 20080404
  Transmission Date: 20081010
  Serious: Yes (Other)
  Sender: FDA-Public Use
  Company Number: JP-PFIZER INC-2008028394

PATIENT
  Sex: Male

DRUGS (4)
  1. MIGLITOL TABLET [Suspect]
     Indication: DIABETES MELLITUS
     Dosage: DAILY DOSE:150MG
     Route: 048
     Dates: start: 20071207, end: 20080317
  2. AMARYL [Suspect]
     Indication: DIABETES MELLITUS
     Dosage: DAILY DOSE:3MG
     Route: 048
     Dates: start: 20020101, end: 20080317
  3. ACECOL [Suspect]
     Dosage: DAILY DOSE:2MG
     Route: 048
     Dates: start: 20050506, end: 20080317
  4. GLUCOBAY [Concomitant]
     Indication: DIABETES MELLITUS
     Dates: end: 20071207

REACTIONS (1)
  - HEPATIC FUNCTION ABNORMAL [None]
